FAERS Safety Report 5662030-1 (Version None)
Quarter: 2008Q1

REPORT INFORMATION
  Report Type: 
  Country: None (occurrence: None)
  Receive Date: 20080312
  Receipt Date: 20080303
  Transmission Date: 20080703
  Serious: Yes (Life-Threatening, Hospitalization)
  Sender: FDA-Public Use
  Company Number: GB-AVENTIS-200811485GDDC

PATIENT
  Age: 51 Year
  Sex: Female
  Weight: 62.2 kg

DRUGS (4)
  1. TAXOTERE [Suspect]
     Indication: BREAST CANCER
     Route: 042
     Dates: start: 20080122, end: 20080122
  2. DEXAMETHASONE TAB [Concomitant]
     Route: 048
     Dates: start: 20080121, end: 20080123
  3. ONDANSETRON [Concomitant]
     Indication: PREMEDICATION
     Route: 048
     Dates: start: 20080122, end: 20080123
  4. DOMPERIDONE [Concomitant]
     Dosage: DOSE: 20 MCG TID PRN
     Dates: start: 20080122, end: 20080127

REACTIONS (6)
  - ABDOMINAL PAIN [None]
  - ENTEROCOLITIS [None]
  - LOCALISED OEDEMA [None]
  - NEUTROPENIA [None]
  - NEUTROPENIC COLITIS [None]
  - VASCULITIS [None]
